FAERS Safety Report 6956075-9 (Version None)
Quarter: 2010Q3

REPORT INFORMATION
  Report Type: 
  Country: None (occurrence: None)
  Receive Date: 20100830
  Receipt Date: 20091028
  Transmission Date: 20110219
  Serious: No
  Sender: FDA-Public Use
  Company Number: US-AMGEN-KDL371655

PATIENT
  Sex: Male

DRUGS (11)
  1. NEUPOGEN [Suspect]
     Indication: NEUTROPENIA
     Dates: start: 20091027
  2. PROGRAF [Concomitant]
  3. LIPITOR [Concomitant]
  4. PRILOSEC [Concomitant]
  5. LOPRESSOR [Concomitant]
  6. ASPIRIN [Concomitant]
  7. NIACIN [Concomitant]
  8. VALCYTET [Concomitant]
  9. BACTRIM [Concomitant]
  10. CELLCEPT [Concomitant]
  11. MAGNESIUM [Concomitant]

REACTIONS (10)
  - ARTHRALGIA [None]
  - BACK PAIN [None]
  - BONE PAIN [None]
  - COSTOCHONDRITIS [None]
  - DISCOMFORT [None]
  - DYSPNOEA [None]
  - MUSCULOSKELETAL DISCOMFORT [None]
  - NAUSEA [None]
  - PAIN [None]
  - WHITE BLOOD CELL COUNT DECREASED [None]
